FAERS Safety Report 9897868 (Version 1)
Quarter: 2014Q1

REPORT INFORMATION
  Report Type: Spontaneous
  Country: US (occurrence: US)
  Receive Date: 20140214
  Receipt Date: 20140214
  Transmission Date: 20141002
  Serious: No
  Sender: FDA-Public Use
  Company Number: US-PFIZER INC-2014039283

PATIENT
  Age: 6 Year
  Sex: Female
  Weight: 27.66 kg

DRUGS (4)
  1. GENOTROPIN [Suspect]
     Indication: HYPOPITUITARISM
     Dosage: 0.6 MG, 1X/DAY
     Route: 030
     Dates: start: 2013
  2. GENOTROPIN [Suspect]
     Indication: GROWTH HORMONE DEFICIENCY
  3. LUPRON [Suspect]
     Dosage: UNK
  4. DESMOPRESSIN [Concomitant]
     Dosage: UNK

REACTIONS (2)
  - Nerve injury [Not Recovered/Not Resolved]
  - Incorrect route of drug administration [Unknown]
